FAERS Safety Report 10311844 (Version 1)
Quarter: 2014Q3

REPORT INFORMATION
  Report Type: Report from Study
  Country: US (occurrence: US)
  Receive Date: 20140717
  Receipt Date: 20140717
  Transmission Date: 20150326
  Serious: Yes (Hospitalization)
  Sender: FDA-Public Use
  Company Number: US-ABBVIE-14P-163-1259509-00

PATIENT
  Age: 59 Year
  Sex: Female

DRUGS (3)
  1. AMOXICILLIN. [Suspect]
     Active Substance: AMOXICILLIN
     Indication: COUGH
  2. METHOTREXATE [Concomitant]
     Active Substance: METHOTREXATE
     Indication: PRODUCT USED FOR UNKNOWN INDICATION
  3. HUMIRA [Suspect]
     Active Substance: ADALIMUMAB
     Indication: RHEUMATOID ARTHRITIS
     Dates: end: 201406

REACTIONS (11)
  - Pneumonia [Unknown]
  - Hypoalbuminaemia [Unknown]
  - Oedema [Recovering/Resolving]
  - Drug hypersensitivity [Unknown]
  - Poliomyelitis [Recovering/Resolving]
  - Pyrexia [Unknown]
  - Dermatitis allergic [Unknown]
  - Cough [Unknown]
  - Chest discomfort [Unknown]
  - Malaise [Unknown]
  - Rhabdomyolysis [Unknown]

NARRATIVE: CASE EVENT DATE: 201405
